FAERS Safety Report 5024376-X (Version None)
Quarter: 2006Q2

REPORT INFORMATION
  Report Type: 
  Country: None (occurrence: None)
  Receive Date: 20060426
  Receipt Date: 20060305
  Transmission Date: 20061013
  Serious: Yes (Other)
  Sender: FDA-Public Use
  Company Number: 2006032196

PATIENT
  Age: 77 Year
  Sex: Male
  Weight: 113.3993 kg

DRUGS (4)
  1. LYRICA [Suspect]
     Indication: DIABETIC NEUROPATHY
     Dosage: 150 MG (50 MG,3 IN 1 D),ORAL
     Route: 048
     Dates: start: 20060201
  2. CARBIDOPA (CARBIDOPA) [Concomitant]
  3. REMERON [Concomitant]
  4. GLUCOPHAGE [Concomitant]

REACTIONS (3)
  - ASTHENIA [None]
  - DIFFICULTY IN WALKING [None]
  - DIZZINESS [None]
